FAERS Safety Report 25684085 (Version 1)
Quarter: 2025Q3

REPORT INFORMATION
  Report Type: Spontaneous
  Country: TR (occurrence: TR)
  Receive Date: 20250815
  Receipt Date: 20250815
  Transmission Date: 20251021
  Serious: Yes (Hospitalization, Other)
  Sender: ALEXION PHARMACEUTICALS
  Company Number: TR-ASTRAZENECA-202508TUR008801TR

PATIENT
  Age: 45 Year
  Sex: Female
  Weight: 68 kg

DRUGS (4)
  1. PULMICORT TURBUHALER [Suspect]
     Active Substance: BUDESONIDE
     Dosage: 0.5 MILLIGRAM, QD
     Dates: start: 20250802, end: 20250802
  2. Intrafen [Concomitant]
     Indication: Upper respiratory tract infection
     Dosage: 400 MILLIGRAM IN 250 CC ISOTONIC
     Dates: start: 20250802, end: 20250802
  3. Tropisal [Concomitant]
     Indication: Upper respiratory tract infection
     Dosage: 2.5 MILLIGRAM, QD
     Dates: start: 20250802, end: 20250802
  4. PAROL [Concomitant]
     Active Substance: ACETAMINOPHEN
     Indication: Upper respiratory tract infection
     Dosage: 1 GRAM, QD
     Dates: start: 20250802, end: 20250802

REACTIONS (3)
  - Tachycardia [Recovering/Resolving]
  - Dyspnoea [Recovering/Resolving]
  - Tremor [Recovering/Resolving]
